FAERS Safety Report 10094212 (Version 2)
Quarter: 2014Q2

REPORT INFORMATION
  Report Type: Spontaneous
  Country: US (occurrence: None)
  Receive Date: 20140418
  Receipt Date: 20140425
  Transmission Date: 20141212
  Serious: Yes (Hospitalization)
  Sender: FDA-Public Use
  Company Number: UTC-047174

PATIENT
  Age: 12 Year
  Sex: Female
  Weight: 47.62 kg

DRUGS (4)
  1. REMODULIN (10 MILLIGRAM/MILLITERS, INJECTION FOR INFUSION) (TREPROSTINIL SODIUM) [Suspect]
     Indication: COR PULMONALE CHRONIC
     Dosage: 220.32 UG/KG (0.153 UG/KG 1 IN 1 MIN)
     Route: 058
     Dates: start: 20091202
  2. COUMADIN (WARFARIN SODIUM) (UNKNOWN) [Concomitant]
  3. TRACLEER (BOSENTAN) (UNKNOWN) [Concomitant]
  4. REVATIO (SILDENAFIL CITRATE)UNKNOWN [Concomitant]

REACTIONS (4)
  - Pain in extremity [None]
  - Device occlusion [None]
  - Infusion site pain [None]
  - Infusion site swelling [None]
